FAERS Safety Report 8046146-0 (Version None)
Quarter: 2012Q1

REPORT INFORMATION
  Report Type: 
  Country: None (occurrence: None)
  Receive Date: 20120113
  Receipt Date: 20111229
  Transmission Date: 20120608
  Serious: Yes (Hospitalization, Other)
  Sender: FDA-Public Use
  Company Number: JP-COVIDIEN/TYCO HEALTHCARE/MALLINCKRODT-T201200281

PATIENT
  Sex: Female
  Weight: 58.3 kg

DRUGS (19)
  1. GLYCERIN                           /00200601/ [Concomitant]
     Indication: CONSTIPATION
     Dosage: 60 ML ENEMA, PRN
     Route: 054
     Dates: start: 20111216
  2. CLONAZEPAM [Concomitant]
     Dosage: 1 MG, QD
     Dates: start: 20111216
  3. LANSOPRAZOLE [Concomitant]
     Indication: CANCER PAIN
     Dosage: 15 MG, QD
  4. METHADONE HCL [Suspect]
     Dosage: 30 MG, QD
     Route: 048
     Dates: start: 20111219, end: 20111222
  5. VOLTAREN [Concomitant]
     Indication: CANCER PAIN
     Dosage: 25 MG SUPPOSITORY, PRN UP TO BID
  6. TPN ELECTROLYTES IN PLASTIC CONTAINER [Concomitant]
     Dosage: 500 ML, QD
  7. METHADONE HCL [Suspect]
     Dosage: 15 MG, QD
     Route: 048
     Dates: start: 20111211, end: 20111214
  8. ANPEC                              /00036303/ [Concomitant]
     Dosage: 10 MG SUPPOSITORY, PRN, UP TO 4 TIMES PER DAY
     Dates: start: 20111211
  9. METHADONE HCL [Suspect]
     Indication: CANCER PAIN
     Dosage: 45 MG, QD
     Route: 048
     Dates: start: 20111223, end: 20111229
  10. PURSENNID                          /00571902/ [Concomitant]
     Dosage: 48 MG, QD
     Dates: start: 20111212
  11. METHADONE HCL [Suspect]
     Dosage: 20 MG, QD
     Route: 048
     Dates: start: 20111215, end: 20111218
  12. LAXOBERON [Concomitant]
     Indication: CONSTIPATION
     Dosage: 10-15 DROPS PER DAY
     Dates: start: 20111215
  13. ACETAMINOPHEN [Concomitant]
     Dosage: 1600 MG, QD
  14. PRAMIPEXOLE DIHYDROCHLORIDE [Concomitant]
     Dosage: 0.5 MG, QD
  15. ATARAX-P                           /00058402/ [Concomitant]
     Indication: CANCER PAIN
     Dosage: 25 MG, PRN
  16. SOLACET F [Concomitant]
     Dosage: 500 ML, QD
  17. MAGMITT [Concomitant]
     Dosage: 990 MG, TID
     Dates: start: 20111212
  18. NAIXAN                             /00256201/ [Concomitant]
     Dosage: 100 MG, TID
  19. LYRICA [Concomitant]
     Dosage: 50 MG, QD

REACTIONS (7)
  - BACK PAIN [None]
  - ABDOMINAL PAIN [None]
  - NAUSEA [None]
  - HYPERHIDROSIS [None]
  - PYREXIA [None]
  - ELECTROCARDIOGRAM QT PROLONGED [None]
  - MALAISE [None]
